FAERS Safety Report 10245287 (Version 2)
Quarter: 2014Q3

REPORT INFORMATION
  Report Type: Spontaneous
  Country: FR (occurrence: FR)
  Receive Date: 20140618
  Receipt Date: 20140709
  Transmission Date: 20150326
  Serious: Yes (Hospitalization)
  Sender: FDA-Public Use
  Company Number: FR-009507513-1406FRA005558

PATIENT
  Age: 26 Year
  Sex: Female

DRUGS (1)
  1. CELESTENE 4MG/1ML [Suspect]
     Active Substance: BETAMETHASONE
     Indication: MULTIPLE SCLEROSIS
     Dosage: UNK UNK, UNKNOWN
     Route: 042
     Dates: start: 201310, end: 201401

REACTIONS (1)
  - Pancreatitis acute [Recovered/Resolved]

NARRATIVE: CASE EVENT DATE: 201401
